FAERS Safety Report 15130734 (Version 1)
Quarter: 2018Q3

REPORT INFORMATION
  Report Type: Spontaneous
  Country: US (occurrence: US)
  Receive Date: 20180711
  Receipt Date: 20180711
  Transmission Date: 20181010
  Serious: Yes (Hospitalization)
  Sender: FDA-Public Use
  Company Number: US-MYLANLABS-2018M1049732

PATIENT
  Sex: Male

DRUGS (1)
  1. FLUOROURACIL. [Suspect]
     Active Substance: FLUOROURACIL
     Indication: NEOPLASM MALIGNANT
     Dosage: 4000 MG, RECEIVED THE ENTIRE FOUR DAYS COURSE OF 4000 MG OF FLUOROURACIL BY IV INFUSION IN LESS THAN
     Route: 041

REACTIONS (4)
  - Incorrect drug administration rate [Recovered/Resolved]
  - No adverse event [Recovered/Resolved]
  - Product label confusion [Recovered/Resolved]
  - Accidental overdose [Recovered/Resolved]
